FAERS Safety Report 17543983 (Version 1)
Quarter: 2020Q1

REPORT INFORMATION
  Report Type: Spontaneous
  Country: PL (occurrence: PL)
  Receive Date: 20200316
  Receipt Date: 20200316
  Transmission Date: 20200409
  Serious: Yes (Hospitalization)
  Sender: FDA-Public Use
  Company Number: NVSC2020PL071056

PATIENT
  Age: 69 Year
  Sex: Male
  Weight: 93.1 kg

DRUGS (8)
  1. METFORMIN HYDROCHLORIDE. [Suspect]
     Active Substance: METFORMIN HYDROCHLORIDE
     Indication: TYPE 2 DIABETES MELLITUS
     Dosage: UNK (TOTAL DAILY DOSE: 1700 MG)
     Route: 048
     Dates: start: 2014
  2. EPLERENONE. [Concomitant]
     Active Substance: EPLERENONE
     Indication: HYPERTENSION
     Dosage: UNK (TOTAL DAILY DOSE: 25 MG)
     Route: 048
     Dates: start: 2016
  3. TELMISARTAN. [Concomitant]
     Active Substance: TELMISARTAN
     Indication: HYPERTENSION
     Dosage: UNK (TOTAL DAILY DOSE: 80 MG)
     Route: 048
     Dates: start: 2012
  4. CHLORTALIDONE [Concomitant]
     Active Substance: CHLORTHALIDONE
     Indication: HYPERTENSION
     Dosage: UNK (TOTAL DAILY DOSE: 25 MG)
     Route: 048
     Dates: start: 2016
  5. CICLESONIDE [Concomitant]
     Active Substance: CICLESONIDE
     Indication: ASTHMA
     Dosage: UNK (TOTAL DAILY DOSE: 320 UG)
     Route: 055
     Dates: start: 2014
  6. RIVAROXABAN [Concomitant]
     Active Substance: RIVAROXABAN
     Indication: PROPHYLAXIS
     Dosage: UNK (TOTAL DAILY DOSE: 15 MG)
     Route: 048
     Dates: start: 2012, end: 20191204
  7. ROSUVASTATIN. [Concomitant]
     Active Substance: ROSUVASTATIN
     Indication: HYPERLIPIDAEMIA
     Dosage: UNK (TOTAL DAILY DOSE: 5 MG)
     Route: 048
     Dates: start: 2016
  8. LACIDIPINE [Concomitant]
     Active Substance: LACIDIPINE
     Indication: HYPERTENSION
     Dosage: UNK (TOTAL DAILY DOSE: 4 MG)
     Route: 048
     Dates: start: 2018

REACTIONS (1)
  - Anaemia [Recovering/Resolving]

NARRATIVE: CASE EVENT DATE: 20191205
